FAERS Safety Report 4708411-1 (Version None)
Quarter: 2005Q3

REPORT INFORMATION
  Report Type: 
  Country: None (occurrence: None)
  Receive Date: 20050706
  Receipt Date: 20050622
  Transmission Date: 20060218
  Serious: Yes (Other)
  Sender: FDA-Public Use
  Company Number: S05-USA-03346-01

PATIENT
  Age: 56 Year
  Sex: Male

DRUGS (8)
  1. LEXAPRO [Suspect]
     Indication: DEPRESSION
     Dosage: 10 MG QD PO
     Route: 048
     Dates: start: 20050401, end: 20050501
  2. LEXAPRO [Suspect]
     Indication: GENERALISED ANXIETY DISORDER
     Dosage: 10 MG QD PO
     Route: 048
     Dates: start: 20050401, end: 20050501
  3. LEXAPRO [Suspect]
     Indication: DEPRESSION
     Dosage: 20 MG QD PO
     Route: 048
     Dates: start: 20050501, end: 20050101
  4. LEXAPRO [Suspect]
     Indication: GENERALISED ANXIETY DISORDER
     Dosage: 20 MG QD PO
     Route: 048
     Dates: start: 20050501, end: 20050101
  5. ANAFRANIL [Concomitant]
  6. LEXAPRO [Suspect]
     Indication: DEPRESSION
     Dosage: 15 MG QD PO
     Route: 048
     Dates: start: 20050101
  7. LEXAPRO [Suspect]
     Indication: GENERALISED ANXIETY DISORDER
     Dosage: 15 MG QD PO
     Route: 048
     Dates: start: 20050101
  8. NAVANE [Suspect]
     Indication: SCHIZOAFFECTIVE DISORDER
     Dosage: 10 MG QD PO
     Route: 048
     Dates: start: 19930101

REACTIONS (5)
  - AKATHISIA [None]
  - CONDITION AGGRAVATED [None]
  - FATIGUE [None]
  - FEELING ABNORMAL [None]
  - RESTLESSNESS [None]
